FAERS Safety Report 6096635-3 (Version None)
Quarter: 2009Q1

REPORT INFORMATION
  Report Type: 
  Country: None (occurrence: None)
  Receive Date: 20090227
  Receipt Date: 20090215
  Transmission Date: 20090719
  Serious: Yes (Hospitalization)
  Sender: FDA-Public Use
  Company Number: AU-AMGEN-US335539

PATIENT
  Sex: Female

DRUGS (13)
  1. NEULASTA [Suspect]
     Indication: CHEMOTHERAPY
     Dates: start: 20090205
  2. FLUOROURACIL [Concomitant]
     Dates: start: 20090204
  3. EPIRUBICIN [Concomitant]
     Dates: start: 20090204
  4. CYCLOPHOSPHAMIDE [Concomitant]
     Dates: start: 20090204
  5. TAXOTERE [Concomitant]
     Dates: start: 20090204
  6. COVERSYL [Concomitant]
  7. NORVASC [Concomitant]
  8. BETALOC [Concomitant]
  9. DILTIAZEM [Concomitant]
  10. SLOW-K [Concomitant]
  11. MAGMIN [Concomitant]
  12. FISH OIL [Concomitant]
  13. MIRTAZAPINE [Concomitant]

REACTIONS (5)
  - CHILLS [None]
  - HYPERHIDROSIS [None]
  - MALAISE [None]
  - NEUTROPHIL COUNT DECREASED [None]
  - WHITE BLOOD CELL COUNT DECREASED [None]
